FAERS Safety Report 5786626-1 (Version None)
Quarter: 2008Q2

REPORT INFORMATION
  Report Type: 
  Country: None (occurrence: None)
  Receive Date: 20080624
  Receipt Date: 20080613
  Transmission Date: 20081010
  Serious: Yes (Death, Other)
  Sender: FDA-Public Use
  Company Number: JP-PFIZER INC-2008050702

PATIENT
  Age: 48 Year
  Sex: Female

DRUGS (1)
  1. SALAZOPYRIN [Suspect]

REACTIONS (3)
  - ACUTE PULMONARY OEDEMA [None]
  - DRUG RASH WITH EOSINOPHILIA AND SYSTEMIC SYMPTOMS [None]
  - LIVER DISORDER [None]
